FAERS Safety Report 4595792-5 (Version None)
Quarter: 2005Q1

REPORT INFORMATION
  Report Type: 
  Country: None (occurrence: None)
  Receive Date: 20050224
  Receipt Date: 20050203
  Transmission Date: 20050727
  Serious: Yes (Death)
  Sender: FDA-Public Use
  Company Number: EWC040539350

PATIENT
  Age: 35 Year
  Sex: Male
  Weight: 120 kg

DRUGS (7)
  1. ZYPREXA [Suspect]
     Indication: PSYCHOMOTOR AGITATION
     Dosage: 10 MG
     Dates: start: 20040501, end: 20040507
  2. LORAZEPAM [Concomitant]
  3. TALOFEN (PROMAZINE HYDROCHLORIDE) [Concomitant]
  4. SEROQUEL [Concomitant]
  5. TOLEP (OXCARBAZEPINE) [Concomitant]
  6. ZOLPIDEM TARTRATE [Concomitant]
  7. LORAZEPAM [Concomitant]

REACTIONS (9)
  - ARRHYTHMIA [None]
  - CARDIAC ARREST [None]
  - CARDIAC DISORDER [None]
  - DRUG LEVEL INCREASED [None]
  - DYSPNOEA [None]
  - HALLUCINATION [None]
  - INTENTIONAL SELF-INJURY [None]
  - LIVER DISORDER [None]
  - PULMONARY OEDEMA [None]
